FAERS Safety Report 12950589 (Version 1)
Quarter: 2016Q4

REPORT INFORMATION
  Report Type: Spontaneous
  Country: US (occurrence: US)
  Receive Date: 20161116
  Receipt Date: 20161116
  Transmission Date: 20170207
  Serious: No
  Sender: FDA-Public Use
  Company Number: US-ELI_LILLY_AND_COMPANY-US201611005060

PATIENT
  Sex: Female

DRUGS (3)
  1. HUMALOG [Suspect]
     Active Substance: INSULIN LISPRO
     Dosage: 20 U, PRN
     Route: 065
  2. LEVEMIR [Concomitant]
     Active Substance: INSULIN DETEMIR
     Dosage: UNK, UNKNOWN
     Route: 065
  3. HUMALOG [Suspect]
     Active Substance: INSULIN LISPRO
     Indication: DIABETES MELLITUS
     Dosage: 20 U, PRN
     Route: 065
     Dates: start: 20160602

REACTIONS (15)
  - Blood bilirubin increased [Unknown]
  - Fatigue [Not Recovered/Not Resolved]
  - Narcolepsy [Unknown]
  - Sciatica [Not Recovered/Not Resolved]
  - Biliary tract disorder [Unknown]
  - Jaw disorder [Unknown]
  - Blood glucose increased [Not Recovered/Not Resolved]
  - Liver disorder [Unknown]
  - Herpes zoster [Unknown]
  - Coagulopathy [Unknown]
  - Cataract [Not Recovered/Not Resolved]
  - Blood disorder [Unknown]
  - Amnesia [Not Recovered/Not Resolved]
  - Depression [Not Recovered/Not Resolved]
  - Pruritus [Not Recovered/Not Resolved]
